FAERS Safety Report 8328587-7 (Version None)
Quarter: 2012Q2

REPORT INFORMATION
  Report Type: 
  Country: None (occurrence: None)
  Receive Date: 20120430
  Receipt Date: 20120419
  Transmission Date: 20120825
  Serious: Yes (Hospitalization)
  Sender: FDA-Public Use
  Company Number: 2012-001561

PATIENT

DRUGS (2)
  1. RISEDRONATE SODIUM [Suspect]
     Dosage: ORAL
     Route: 048
  2. LANSOPRAZOLE [Suspect]

REACTIONS (1)
  - INTERSTITIAL LUNG DISEASE [None]
